FAERS Safety Report 25009200 (Version 1)
Quarter: 2025Q1

REPORT INFORMATION
  Report Type: Spontaneous
  Country: US (occurrence: US)
  Receive Date: 20250225
  Receipt Date: 20250225
  Transmission Date: 20250409
  Serious: No
  Sender: ADVANZ PHARMA
  Company Number: US-ADVANZ PHARMA-202502001245

PATIENT

DRUGS (1)
  1. HYDROXYCHLOROQUINE [Suspect]
     Active Substance: HYDROXYCHLOROQUINE

REACTIONS (11)
  - Proteinuria [Unknown]
  - Blood pressure increased [Unknown]
  - Dry eye [Unknown]
  - Dry mouth [Unknown]
  - Tooth erosion [Unknown]
  - Pain [Unknown]
  - Hypersensitivity [Unknown]
  - Arthralgia [Unknown]
  - Joint swelling [Unknown]
  - Lacrimal disorder [Unknown]
  - Eyelid margin crusting [Unknown]
